FAERS Safety Report 18717641 (Version 2)
Quarter: 2021Q1

REPORT INFORMATION
  Report Type: Spontaneous
  Country: SE (occurrence: SE)
  Receive Date: 20210108
  Receipt Date: 20210330
  Transmission Date: 20210419
  Serious: Yes (Hospitalization, Other)
  Sender: FDA-Public Use
  Company Number: SE-PFIZER INC-2021009284

PATIENT
  Sex: Female

DRUGS (3)
  1. XANOR [Suspect]
     Active Substance: ALPRAZOLAM
     Dosage: 3 MG, DAILY
     Dates: start: 2001
  2. PROPAVAN [Concomitant]
     Active Substance: PROPIOMAZINE
  3. TRIONETTA 28 [Suspect]
     Active Substance: ETHINYL ESTRADIOL\LEVONORGESTREL
     Dosage: UNK

REACTIONS (10)
  - Iron deficiency [Unknown]
  - Haemorrhage [Unknown]
  - Dehydration [Unknown]
  - Pulmonary thrombosis [Recovered/Resolved]
  - Influenza like illness [Unknown]
  - Gastroenteritis viral [Unknown]
  - Decreased appetite [Unknown]
  - Pyrexia [Unknown]
  - Insomnia [Unknown]
  - Therapeutic product effect incomplete [Unknown]

NARRATIVE: CASE EVENT DATE: 2020
